FAERS Safety Report 15402770 (Version 1)
Quarter: 2018Q3

REPORT INFORMATION
  Report Type: Report from Study
  Country: IT (occurrence: IT)
  Receive Date: 20180919
  Receipt Date: 20180919
  Transmission Date: 20181010
  Serious: Yes (Other)
  Sender: FDA-Public Use
  Company Number: IT-MYLANLABS-2018M1068738

PATIENT
  Age: 54 Year
  Sex: Female

DRUGS (1)
  1. LITHIUM. [Suspect]
     Active Substance: LITHIUM
     Indication: PRODUCT USED FOR UNKNOWN INDICATION
     Dosage: HAD BEEN RECEIVING LITHIUM FOR 26 YEARS AT THE TIME OF THYROIDECTOMY
     Route: 065

REACTIONS (1)
  - Papillary thyroid cancer [Unknown]
